APPROVED DRUG PRODUCT: CONTEPO
Active Ingredient: FOSFOMYCIN DISODIUM
Strength: EQ 6GM BASE/VIAL
Dosage Form/Route: POWDER;INTRAVENOUS
Application: N212271 | Product #001
Applicant: MEITHEAL PHARMACEUTICALS INC
Approved: Oct 22, 2025 | RLD: Yes | RS: Yes | Type: RX

PATENTS:
Patent 11541064 | Expires: Jan 30, 2039
Patent 10086006 | Expires: Oct 12, 2034
Patent 9345717 | Expires: Oct 27, 2034

EXCLUSIVITY:
Code: NP | Date: Oct 22, 2028
Code: GAIN | Date: Oct 22, 2033